FAERS Safety Report 5581204-1 (Version None)
Quarter: 2007Q4

REPORT INFORMATION
  Report Type: 
  Country: None (occurrence: None)
  Receive Date: 20071227
  Receipt Date: 20071214
  Transmission Date: 20080405
  Serious: Yes (Hospitalization)
  Sender: FDA-Public Use
  Company Number: DSJ-2007-09929

PATIENT
  Age: 68 Year
  Sex: Male
  Weight: 60 kg

DRUGS (4)
  1. OLMESARTAN MEDOXOMIL [Suspect]
     Indication: HYPERTENSION
     Dosage: 20 MG (10 MG, 2 IN 1 D), PER ORAL
     Route: 048
  2. AZULFIDINE EN-TABS [Suspect]
     Indication: RHEUMATOID ARTHRITIS
     Dosage: 500 MG (250 MG, 2 IN 1 D), PER ORAL
     Route: 048
     Dates: start: 20050201, end: 20070819
  3. SOLETON (ZALTOPROFEN) (TABLET) (ZALTOPROFEN) [Suspect]
     Indication: RHEUMATOID ARTHRITIS
     Dosage: 240 MG (80 MG, 3 IN 1 D), PER ORAL
     Route: 048
     Dates: start: 20031001, end: 20070806
  4. AMLODIN (AMLODIPINE BESILATE) (TABLET) (AMLODIPINE BESILATE) [Suspect]
     Indication: HYPERTENSION
     Dosage: 5 MG (5 MG, 1 IN 1 D), PER ORAL
     Route: 048

REACTIONS (6)
  - GLOMERULONEPHRITIS MEMBRANOUS [None]
  - IGA NEPHROPATHY [None]
  - LUNG NEOPLASM MALIGNANT [None]
  - NEPHROTIC SYNDROME [None]
  - PLATELET COUNT DECREASED [None]
  - RHEUMATOID ARTHRITIS [None]
